FAERS Safety Report 10014851 (Version 1)
Quarter: 2014Q1

REPORT INFORMATION
  Report Type: Spontaneous
  Country: MX (occurrence: MX)
  Receive Date: 20140317
  Receipt Date: 20140317
  Transmission Date: 20141002
  Serious: Yes (Hospitalization, Other)
  Sender: FDA-Public Use
  Company Number: MX-JNJFOC-20140308156

PATIENT
  Age: 70 Year
  Sex: Male
  Weight: 52 kg

DRUGS (4)
  1. REMICADE [Suspect]
     Indication: RHEUMATOID ARTHRITIS
     Route: 042
     Dates: start: 20140116
  2. REMICADE [Suspect]
     Indication: RHEUMATOID ARTHRITIS
     Route: 042
     Dates: start: 20120928
  3. METFORMIN [Concomitant]
     Indication: DIABETES MELLITUS
     Route: 065
  4. GLIBENCLAMIDE [Concomitant]
     Indication: DIABETES MELLITUS
     Route: 065

REACTIONS (2)
  - Urinary tract infection [Not Recovered/Not Resolved]
  - Blood glucose increased [Not Recovered/Not Resolved]
